FAERS Safety Report 10866191 (Version 1)
Quarter: 2015Q1

REPORT INFORMATION
  Report Type: Spontaneous
  Country: DE (occurrence: None)
  Receive Date: 20150219
  Receipt Date: 20150219
  Transmission Date: 20150721
  Serious: Yes (Congenital Anomaly)
  Sender: FDA-Public Use
  Company Number: IPC201502-000085

PATIENT
  Sex: Male

DRUGS (4)
  1. PYRIDOXINE [Concomitant]
     Active Substance: PYRIDOXINE
  2. ALLOPURINOL (ALLOPURINOL) (ALLOPURINOL) [Suspect]
     Active Substance: ALLOPURINOL
     Indication: HYPEROXALURIA
  3. SODIUM CARBONATE [Concomitant]
     Active Substance: SODIUM CARBONATE
  4. HYDROCHLOROTHIAZIDE. [Concomitant]
     Active Substance: HYDROCHLOROTHIAZIDE

REACTIONS (14)
  - Conductive deafness [None]
  - Maternal drugs affecting foetus [None]
  - Microphthalmos [None]
  - Cleft lip and palate [None]
  - Congenital hepatomegaly [None]
  - Cholestasis [None]
  - Renal hypoplasia [None]
  - Spleen malformation [None]
  - Cryptorchism [None]
  - Ventricular hypertrophy [None]
  - Retrognathia [None]
  - Low set ears [None]
  - Osteopenia [None]
  - Micropenis [None]
